FAERS Safety Report 4894959-6 (Version None)
Quarter: 2006Q1

REPORT INFORMATION
  Report Type: 
  Country: None (occurrence: None)
  Receive Date: 20060130
  Receipt Date: 20050517
  Transmission Date: 20060701
  Serious: No
  Sender: FDA-Public Use
  Company Number: US-BRISTOL-MYERS SQUIBB COMPANY-12972675

PATIENT
  Sex: Female

DRUGS (2)
  1. METFORMIN HCL [Suspect]
     Indication: DIABETES MELLITUS NON-INSULIN-DEPENDENT
  2. GLUCOPHAGE [Suspect]

REACTIONS (4)
  - DIARRHOEA [None]
  - DISCOMFORT [None]
  - FAECAL INCONTINENCE [None]
  - FLATULENCE [None]
